FAERS Safety Report 8525573-9 (Version None)
Quarter: 2012Q3

REPORT INFORMATION
  Report Type: 
  Country: None (occurrence: None)
  Receive Date: 20120720
  Receipt Date: 20120530
  Transmission Date: 20120928
  Serious: No
  Sender: FDA-Public Use
  Company Number: US-009507513-1207USA006470

PATIENT

DRUGS (1)
  1. MIRALAX [Suspect]
     Indication: BOWEL MOVEMENT IRREGULARITY
     Dosage: UNK UNK, QD
     Route: 048
     Dates: start: 20120528

REACTIONS (1)
  - THERAPEUTIC PRODUCT INEFFECTIVE [None]
